FAERS Safety Report 7892263-5 (Version None)
Quarter: 2011Q4

REPORT INFORMATION
  Report Type: 
  Country: None (occurrence: None)
  Receive Date: 20111104
  Receipt Date: 20111026
  Transmission Date: 20120403
  Serious: No
  Sender: FDA-Public Use
  Company Number: US-BIOGENIDEC-2010BI029173

PATIENT
  Sex: Female

DRUGS (3)
  1. TYSABRI [Suspect]
     Route: 042
     Dates: start: 20090518, end: 20101108
  2. TYSABRI [Suspect]
     Indication: MULTIPLE SCLEROSIS
     Route: 042
     Dates: start: 20070328, end: 20080130
  3. AVONEX [Concomitant]
     Indication: MULTIPLE SCLEROSIS
     Route: 030

REACTIONS (13)
  - MULTIPLE SCLEROSIS [None]
  - ABDOMINAL DISCOMFORT [None]
  - VERTIGO [None]
  - THERMOANAESTHESIA [None]
  - PAIN IN EXTREMITY [None]
  - FAECAL INCONTINENCE [None]
  - HEADACHE [None]
  - MOBILITY DECREASED [None]
  - MOVEMENT DISORDER [None]
  - HYPOAESTHESIA [None]
  - MEMORY IMPAIRMENT [None]
  - GAIT DISTURBANCE [None]
  - GASTROINTESTINAL DISORDER [None]
